FAERS Safety Report 4571888-9 (Version None)
Quarter: 2005Q1

REPORT INFORMATION
  Report Type: 
  Country: None (occurrence: None)
  Receive Date: 20050207
  Receipt Date: 20050131
  Transmission Date: 20050727
  Serious: Yes (Hospitalization)
  Sender: FDA-Public Use
  Company Number: PHRM2005FR00697

PATIENT
  Age: 75 Year
  Sex: Female

DRUGS (3)
  1. COTAREG [Suspect]
     Dosage: 1 DF, QD
     Route: 048
  2. LOXEN/CARDENE [Suspect]
     Dosage: 20 MG, TID
     Route: 048
  3. EUPRESSYL [Suspect]
     Dosage: 30 MG, BID
     Route: 048

REACTIONS (5)
  - FATIGUE [None]
  - IDIOPATHIC THROMBOCYTOPENIC PURPURA [None]
  - LUNG DISORDER [None]
  - LYMPHOPENIA [None]
  - THROMBOCYTOPENIA [None]
